FAERS Safety Report 23540972 (Version 2)
Quarter: 2024Q2

REPORT INFORMATION
  Report Type: Spontaneous
  Country: US (occurrence: US)
  Receive Date: 20240219
  Receipt Date: 20240517
  Transmission Date: 20240716
  Serious: No
  Sender: FDA-Public Use
  Company Number: US-Stemline Therapeutics, Inc.-2024ST000462

PATIENT
  Age: 69 Year
  Sex: Female

DRUGS (1)
  1. ORSERDU [Suspect]
     Active Substance: ELACESTRANT
     Indication: Product used for unknown indication
     Route: 048
     Dates: start: 20231223

REACTIONS (6)
  - Hypotension [Unknown]
  - Dizziness postural [Unknown]
  - Headache [Unknown]
  - Constipation [Not Recovered/Not Resolved]
  - Rash [Recovering/Resolving]
  - Rash erythematous [Recovering/Resolving]
